FAERS Safety Report 21322500 (Version 1)
Quarter: 2022Q3

REPORT INFORMATION
  Report Type: Spontaneous
  Country: US (occurrence: US)
  Receive Date: 20220912
  Receipt Date: 20220912
  Transmission Date: 20221027
  Serious: No
  Sender: FDA-Public Use
  Company Number: US-PFIZER INC-202201139404

PATIENT
  Age: 80 Year
  Sex: Female
  Weight: 63.5 kg

DRUGS (2)
  1. PAXLOVID [Suspect]
     Active Substance: NIRMATRELVIR\RITONAVIR
     Indication: COVID-19 treatment
     Dosage: 300MG/100MG DOSE PACK ADAPTED, TOOK OUT A PILL EACH, ADJUSTED FOR RENAL DOSE
     Dates: start: 20220906
  2. ZOLPIDEM [Concomitant]
     Active Substance: ZOLPIDEM TARTRATE
     Indication: Sleep disorder
     Dosage: UNK

REACTIONS (3)
  - Dysgeusia [Not Recovered/Not Resolved]
  - Hypervigilance [Unknown]
  - Poor quality sleep [Unknown]

NARRATIVE: CASE EVENT DATE: 20220906
